FAERS Safety Report 9748416 (Version 2)
Quarter: 2013Q4

REPORT INFORMATION
  Report Type: Report from Study
  Country: CA (occurrence: CA)
  Receive Date: 20131212
  Receipt Date: 20131218
  Transmission Date: 20140711
  Serious: Yes (Death)
  Sender: FDA-Public Use
  Company Number: PHHY2013CA145244

PATIENT
  Age: 50 Year
  Sex: Female

DRUGS (9)
  1. CLOZARIL [Suspect]
     Indication: SCHIZOPHRENIA
     Dosage: UNK
     Dates: start: 19950509
  2. CLOZARIL [Suspect]
     Indication: SELF INJURIOUS BEHAVIOUR
     Dosage: 375 MG, DAILY
     Route: 048
     Dates: start: 2000
  3. VALPROIC ACID [Concomitant]
     Dosage: UNK UKN, UNK
  4. OXAZEPAM [Concomitant]
     Dosage: UNK UKN, UNK
  5. ATROVENT NASAL SPRAY [Concomitant]
     Dosage: UNK UKN, UNK
  6. DOCUSATE W/SENNA [Concomitant]
     Dosage: UNK UKN, UNK
  7. FERROUS SULFATE [Concomitant]
     Dosage: UNK UKN, UNK
  8. SYNTHROID [Concomitant]
     Dosage: UNK UKN, UNK
  9. SENNA [Concomitant]
     Dosage: UNK UKN, UNK

REACTIONS (2)
  - Death [Fatal]
  - Anaemia [Unknown]
